FAERS Safety Report 5507922-9 (Version None)
Quarter: 2007Q4

REPORT INFORMATION
  Report Type: 
  Country: None (occurrence: None)
  Receive Date: 20071106
  Receipt Date: 20071024
  Transmission Date: 20080405
  Serious: Yes (Hospitalization)
  Sender: FDA-Public Use
  Company Number: DE-PFIZER INC-2006057955

PATIENT
  Sex: Male
  Weight: 102 kg

DRUGS (8)
  1. SUTENT [Suspect]
     Indication: METASTATIC RENAL CELL CARCINOMA
     Route: 048
     Dates: start: 20060331, end: 20060427
  2. AMLODIPINE [Concomitant]
     Route: 048
  3. LEVOTHYROXINE SODIUM [Concomitant]
     Route: 048
  4. SODIUM HYDROGEN CARBONATE [Concomitant]
     Route: 048
  5. CHININ [Concomitant]
     Route: 048
  6. PHENPROCOUMON [Concomitant]
     Route: 048
  7. FUROSEMIDE [Concomitant]
     Route: 048
  8. BISOPROLOL FUMARATE [Concomitant]
     Route: 048
     Dates: start: 19990401, end: 20060301

REACTIONS (1)
  - BUNDLE BRANCH BLOCK RIGHT [None]
